FAERS Safety Report 8627677 (Version 2)
Quarter: 2014Q2

REPORT INFORMATION
  Report Type: Spontaneous
  Country: None (occurrence: None)
  Receive Date: 20120606
  Receipt Date: 20140415
  Transmission Date: 20141212
  Serious: Yes (Life-Threatening, Hospitalization, Disabling, Other)
  Sender: FDA-Public Use
  Company Number: 08-AUR-03610

PATIENT
  Age: 44 Year
  Sex: Female

DRUGS (2)
  1. RISPERIDONE (RISPERIDONE) [Suspect]
     Indication: BIPOLAR DISORDER
     Dosage: (62.5 MG, 1 WK)
     Dates: start: 20071102, end: 20080124
  2. MIRTAZAPINE (MIRTAZAPINE) [Suspect]
     Indication: DEPRESSION
     Dosage: 180 MG (45 MG, 4 IN 1 D), ORAL
     Route: 048
     Dates: start: 20080123, end: 20080212

REACTIONS (13)
  - Blood pressure fluctuation [None]
  - Hyperhidrosis [None]
  - Hypertonia [None]
  - Loss of consciousness [None]
  - Nuchal rigidity [None]
  - Psychomotor retardation [None]
  - Bedridden [None]
  - Hyperthermia [None]
  - Muscle rigidity [None]
  - Mobility decreased [None]
  - Neuroleptic malignant syndrome [None]
  - Serotonin syndrome [None]
  - Confusional state [None]
